FAERS Safety Report 8386772-2 (Version None)
Quarter: 2012Q2

REPORT INFORMATION
  Report Type: 
  Country: None (occurrence: None)
  Receive Date: 20120525
  Receipt Date: 20120521
  Transmission Date: 20120825
  Serious: Yes (Other)
  Sender: FDA-Public Use
  Company Number: US-BAYER-2011-046668

PATIENT
  Age: 43 Year
  Sex: Female
  Weight: 107.48 kg

DRUGS (13)
  1. CELEBREX [Concomitant]
     Indication: PAIN MANAGEMENT
     Dosage: 200 MG, UNK
  2. MULTI-VITAMIN [Concomitant]
  3. CYMBALTA [Concomitant]
     Dosage: UNK
     Dates: start: 20080801
  4. NEXIUM [Concomitant]
     Indication: GASTROOESOPHAGEAL REFLUX DISEASE
     Dosage: 40 MG, QD
  5. ADVAIR DISKUS 100/50 [Concomitant]
     Indication: ASTHMA
     Dosage: 2 PUFF(S), PRN
  6. FLONASE [Concomitant]
     Indication: MULTIPLE ALLERGIES
     Dosage: 2 PUFF(S), PRN
  7. ALBUTEROL [Concomitant]
     Route: 055
  8. YAZ [Suspect]
     Indication: PREMENSTRUAL SYNDROME
     Dosage: UNK
     Route: 048
     Dates: start: 20061201, end: 20070308
  9. ASPIRIN [Concomitant]
     Dosage: 81 MG, UNK
  10. FLUOXETINE [Concomitant]
     Indication: PREMENSTRUAL SYNDROME
  11. ASPIRIN [Concomitant]
     Indication: ANTICOAGULANT THERAPY
     Dosage: UNK UNK, PRN
     Dates: start: 20070101
  12. RELAFEN [Concomitant]
  13. SARAFEM [Concomitant]

REACTIONS (12)
  - EMOTIONAL DISTRESS [None]
  - POOR PERIPHERAL CIRCULATION [None]
  - ANHEDONIA [None]
  - CHOLECYSTITIS CHRONIC [None]
  - OEDEMA PERIPHERAL [None]
  - ERYTHEMA [None]
  - LIMB DISCOMFORT [None]
  - DEEP VEIN THROMBOSIS [None]
  - MUSCLE SPASMS [None]
  - THROMBOPHLEBITIS SUPERFICIAL [None]
  - ARTHRALGIA [None]
  - HYPOAESTHESIA [None]
